FAERS Safety Report 19357591 (Version 1)
Quarter: 2021Q2

REPORT INFORMATION
  Report Type: Spontaneous
  Country: US (occurrence: US)
  Receive Date: 20210601
  Receipt Date: 20210601
  Transmission Date: 20210717
  Serious: Yes (Hospitalization)
  Sender: FDA-Public Use
  Company Number: US-GW PHARMA-202105USGW02578

PATIENT

DRUGS (1)
  1. EPIDIOLEX [Suspect]
     Active Substance: CANNABIDIOL
     Indication: LENNOX-GASTAUT SYNDROME
     Dosage: 520 MILLIGRAM, BID
     Route: 048
     Dates: start: 20201128

REACTIONS (3)
  - Product dose omission issue [Unknown]
  - Oropharyngeal pain [Not Recovered/Not Resolved]
  - Pyrexia [Not Recovered/Not Resolved]

NARRATIVE: CASE EVENT DATE: 202101
